FAERS Safety Report 24824736 (Version 1)
Quarter: 2025Q1

REPORT INFORMATION
  Report Type: Spontaneous
  Country: US (occurrence: None)
  Receive Date: 20250109
  Receipt Date: 20250109
  Transmission Date: 20250409
  Serious: Yes (Hospitalization)
  Sender: FDA-CTU
  Company Number: None

PATIENT
  Sex: Male
  Weight: 66.5 kg

DRUGS (4)
  1. CISPLATIN [Suspect]
     Active Substance: CISPLATIN
  2. DOXORUBICIN HYDROCHLORIDE [Suspect]
     Active Substance: DOXORUBICIN HYDROCHLORIDE
  3. METHOTREXATE [Suspect]
     Active Substance: METHOTREXATE
  4. VINBLASTINE SULFATE [Suspect]
     Active Substance: VINBLASTINE SULFATE

REACTIONS (12)
  - Nausea [None]
  - Hypophagia [None]
  - Fluid intake reduced [None]
  - Retching [None]
  - Stomatitis [None]
  - Constipation [None]
  - Gait disturbance [None]
  - Dizziness [None]
  - Acute kidney injury [None]
  - Toxicity to various agents [None]
  - Malnutrition [None]
  - Oropharyngeal pain [None]

NARRATIVE: CASE EVENT DATE: 20241218
